FAERS Safety Report 6095526-1 (Version None)
Quarter: 2009Q1

REPORT INFORMATION
  Report Type: 
  Country: None (occurrence: None)
  Receive Date: 20090225
  Receipt Date: 20090225
  Transmission Date: 20090719
  Serious: Yes (Disabling)
  Sender: FDA-Public Use
  Company Number: None

PATIENT
  Sex: Male
  Weight: 69.8539 kg

DRUGS (3)
  1. LYRICA [Suspect]
     Indication: NEUROPATHY PERIPHERAL
     Dosage: 50 MG. 2X DAILY
  2. LYRICA [Suspect]
     Indication: PAIN IN EXTREMITY
     Dosage: 75 MG 2X DAILY
  3. LYRICA [Suspect]
     Indication: PAIN IN EXTREMITY
     Dosage: 100 MG 2X DAILY

REACTIONS (3)
  - ARTHROPATHY [None]
  - CARDIAC DISORDER [None]
  - GLAUCOMA [None]
